FAERS Safety Report 22151991 (Version 1)
Quarter: 2023Q1

REPORT INFORMATION
  Report Type: Spontaneous
  Country: FR (occurrence: FR)
  Receive Date: 20230329
  Receipt Date: 20230329
  Transmission Date: 20230418
  Serious: Yes (Hospitalization)
  Sender: FDA-Public Use
  Company Number: None

PATIENT
  Age: 72 Year
  Sex: Male

DRUGS (44)
  1. CASPOFUNGIN ACETATE [Suspect]
     Active Substance: CASPOFUNGIN ACETATE
     Indication: Product used for unknown indication
     Dosage: UNK
     Dates: start: 20230119, end: 20230220
  2. CILASTATIN SODIUM\IMIPENEM [Suspect]
     Active Substance: CILASTATIN SODIUM\IMIPENEM
     Indication: Product used for unknown indication
     Dosage: UNK
     Route: 042
     Dates: start: 20230209, end: 20230220
  3. FUROSEMIDE [Suspect]
     Active Substance: FUROSEMIDE
     Indication: Product used for unknown indication
     Dosage: UNK
     Dates: start: 20230123, end: 20230208
  4. PIPERACILLIN SODIUM\TAZOBACTAM SODIUM [Suspect]
     Active Substance: PIPERACILLIN SODIUM\TAZOBACTAM SODIUM
     Indication: Product used for unknown indication
     Dosage: UNK
     Dates: start: 20230118, end: 20230209
  5. HYDROXYZINE HYDROCHLORIDE [Suspect]
     Active Substance: HYDROXYZINE HYDROCHLORIDE
     Indication: Product used for unknown indication
     Dosage: UNK
     Dates: start: 20230118, end: 20230222
  6. NEFOPAM HYDROCHLORIDE [Suspect]
     Active Substance: NEFOPAM HYDROCHLORIDE
     Indication: Product used for unknown indication
     Dosage: UNK
     Dates: start: 20230201, end: 20230207
  7. VANCOMYCIN [Suspect]
     Active Substance: VANCOMYCIN
     Indication: Product used for unknown indication
     Dosage: UNK
     Dates: start: 20230129, end: 20230220
  8. TRAMADOL HYDROCHLORIDE [Suspect]
     Active Substance: TRAMADOL HYDROCHLORIDE
     Indication: Product used for unknown indication
     Dosage: UNK
     Dates: start: 20230113, end: 20230212
  9. TRAMADOL HYDROCHLORIDE [Suspect]
     Active Substance: TRAMADOL HYDROCHLORIDE
     Indication: Product used for unknown indication
     Dosage: UNK
     Dates: start: 20230125, end: 20230131
  10. OXAZEPAM [Concomitant]
     Active Substance: OXAZEPAM
  11. MORPHINE [Concomitant]
     Active Substance: MORPHINE
  12. CEFTAZIDIME [Concomitant]
     Active Substance: CEFTAZIDIME
  13. ROSUVASTATIN [Concomitant]
     Active Substance: ROSUVASTATIN
  14. SPIRONOLACTONE [Concomitant]
     Active Substance: SPIRONOLACTONE
  15. CLOBETASOL PROPIONATE [Concomitant]
     Active Substance: CLOBETASOL PROPIONATE
  16. POLARAMINE [Concomitant]
     Active Substance: DEXCHLORPHENIRAMINE MALEATE
  17. PRIMPERAN [Concomitant]
     Active Substance: METOCLOPRAMIDE HYDROCHLORIDE
  18. AMIKACIN [Concomitant]
     Active Substance: AMIKACIN
  19. GANCICLOVIR [Concomitant]
     Active Substance: GANCICLOVIR
  20. PERIKABIVEN [Concomitant]
     Active Substance: ALANINE\ARGININE\ASPARTIC ACID\CALCIUM CHLORIDE\DEXTROSE MONOHYDRATE\GLUTAMIC ACID\GLYCINE\HISTIDINE
     Dosage: UNK
  21. PERIOLIMEL [Concomitant]
  22. DILTIAZEM HYDROCHLORIDE [Concomitant]
     Active Substance: DILTIAZEM HYDROCHLORIDE
  23. LANSOPRAZOLE [Concomitant]
     Active Substance: LANSOPRAZOLE
  24. AMBISOME [Concomitant]
     Active Substance: AMPHOTERICIN B
  25. EUPANTOL [Concomitant]
     Active Substance: PANTOPRAZOLE SODIUM
  26. LERCANIDIPINE HYDROCHLORIDE [Concomitant]
     Active Substance: LERCANIDIPINE HYDROCHLORIDE
  27. ZOPICLONE [Concomitant]
     Active Substance: ZOPICLONE
  28. CLOBETASOL PROPIONATE [Concomitant]
     Active Substance: CLOBETASOL PROPIONATE
  29. LOVENOX [Concomitant]
     Active Substance: ENOXAPARIN SODIUM
  30. ONDANSETRON [Concomitant]
     Active Substance: ONDANSETRON
  31. LEVETIRACETAM [Concomitant]
     Active Substance: LEVETIRACETAM
  32. AVIBACTAM SODIUM [Concomitant]
     Active Substance: AVIBACTAM SODIUM
  33. POLARAMINE [Concomitant]
     Active Substance: DEXCHLORPHENIRAMINE MALEATE
  34. ASPIRIN [Concomitant]
     Active Substance: ASPIRIN
  35. AMINO ACIDS\DEXTROSE\ELECTROLYTES NOS\SOYBEAN OIL [Concomitant]
     Active Substance: AMINO ACIDS\DEXTROSE\ELECTROLYTES NOS\SOYBEAN OIL
  36. ALPRAZOLAM [Concomitant]
     Active Substance: ALPRAZOLAM
  37. LINEZOLID [Concomitant]
     Active Substance: LINEZOLID
  38. AMOXICILLIN\CLAVULANATE POTASSIUM [Concomitant]
     Active Substance: AMOXICILLIN\CLAVULANATE POTASSIUM
  39. CANRENOATE POTASSIUM\TROMETHAMINE [Concomitant]
     Active Substance: CANRENOATE POTASSIUM\TROMETHAMINE
  40. CIMETIDINE [Concomitant]
     Active Substance: CIMETIDINE
  41. HYDROCORTISONE [Concomitant]
     Active Substance: HYDROCORTISONE
  42. FLUDROCORTISONE [Concomitant]
     Active Substance: FLUDROCORTISONE
  43. HYDROCHLOROTHIAZIDE [Concomitant]
     Active Substance: HYDROCHLOROTHIAZIDE
  44. NICARDIPINE HYDROCHLORIDE [Concomitant]
     Active Substance: NICARDIPINE HYDROCHLORIDE

REACTIONS (2)
  - Eosinophilia [Recovered/Resolved]
  - Rash maculo-papular [Recovering/Resolving]

NARRATIVE: CASE EVENT DATE: 20230210
